FAERS Safety Report 8283050-7 (Version None)
Quarter: 2012Q2

REPORT INFORMATION
  Report Type: 
  Country: None (occurrence: None)
  Receive Date: 20120413
  Receipt Date: 20120407
  Transmission Date: 20120825
  Serious: Yes (Other)
  Sender: FDA-Public Use
  Company Number: BR-SANOFI-AVENTIS-2012SA024467

PATIENT
  Age: 79 Year
  Sex: Male
  Weight: 77 kg

DRUGS (7)
  1. SERTRALINE HYDROCHLORIDE [Concomitant]
     Indication: ANXIETY
     Route: 048
  2. ATORVASTATIN CALCIUM [Concomitant]
     Route: 048
  3. LANTUS [Suspect]
     Route: 058
  4. CYANOCOBALAMIN/PYRIDOXINE/THIAMINE [Concomitant]
     Indication: NEURITIS
     Route: 030
  5. ATENOLOL [Concomitant]
     Indication: ARRHYTHMIA
     Route: 048
  6. LANTUS [Suspect]
     Route: 058
  7. ALL OTHER THERAPEUTIC PRODUCTS [Concomitant]
     Indication: HYPERTENSION
     Route: 048

REACTIONS (8)
  - TESTICULAR MASS [None]
  - UPPER EXTREMITY MASS [None]
  - TESTICULAR SWELLING [None]
  - LOWER EXTREMITY MASS [None]
  - PRURITUS GENITAL [None]
  - OEDEMA PERIPHERAL [None]
  - ERYTHEMA [None]
  - PRURITUS [None]
